FAERS Safety Report 6211501-8 (Version None)
Quarter: 2009Q2

REPORT INFORMATION
  Report Type: 
  Country: None (occurrence: None)
  Receive Date: 20090528
  Receipt Date: 20090518
  Transmission Date: 20091009
  Serious: Yes (Death)
  Sender: FDA-Public Use
  Company Number: 2009AL000706

PATIENT
  Age: 89 Year
  Sex: Female

DRUGS (13)
  1. DIGOXIN [Suspect]
     Indication: HEART RATE IRREGULAR
     Dosage: 0.25MG, DAILY, PO
     Route: 048
  2. ASPIRIN [Concomitant]
  3. ALDACTONE [Concomitant]
  4. COUMADIN [Concomitant]
  5. ALTACE [Concomitant]
  6. PROPRANOLOL HYDROCHLORIDE [Concomitant]
  7. INDERAL [Concomitant]
  8. LASIX [Concomitant]
  9. POTASSIUM CHLORIDE [Concomitant]
  10. MEGACE [Concomitant]
  11. CIPRO [Concomitant]
  12. METOPROLOL SUCCINATE [Concomitant]
  13. LUMIGAN [Concomitant]

REACTIONS (12)
  - ANXIETY [None]
  - APHASIA [None]
  - ATRIAL FIBRILLATION [None]
  - CARDIAC FAILURE [None]
  - CELLULITIS [None]
  - DRUG TOXICITY [None]
  - HAEMORRHAGE INTRACRANIAL [None]
  - MULTIPLE INJURIES [None]
  - MUSCULAR WEAKNESS [None]
  - PAIN [None]
  - PULSE ABSENT [None]
  - URINARY TRACT INFECTION [None]
